FAERS Safety Report 24037516 (Version 1)
Quarter: 2024Q3

REPORT INFORMATION
  Report Type: Spontaneous
  Country: TR (occurrence: TR)
  Receive Date: 20240702
  Receipt Date: 20240702
  Transmission Date: 20241016
  Serious: Yes (Hospitalization)
  Sender: NOVO NORDISK
  Company Number: TR-NOVOPROD-1245280

PATIENT
  Age: 713 Month
  Sex: Female
  Weight: 74 kg

DRUGS (8)
  1. ASPIRIN [Concomitant]
     Active Substance: ASPIRIN
     Indication: Myocardial infarction
     Dosage: 81 MG
  2. EFFIENT [Concomitant]
     Active Substance: PRASUGREL HYDROCHLORIDE
     Indication: Blood disorder
     Dosage: 10 MG
  3. DILTIZEM [Concomitant]
     Indication: Arrhythmia
     Dosage: 120 MG
  4. TARDEN [Concomitant]
     Indication: Blood cholesterol abnormal
     Dosage: 40 MG
  5. INSULIN ASPART\INSULIN DEGLUDEC [Suspect]
     Active Substance: INSULIN ASPART\INSULIN DEGLUDEC
     Indication: Type 1 diabetes mellitus
     Dosage: UNK
  6. CREBROS [Concomitant]
     Indication: Hypersensitivity
     Dosage: 5 MG
  7. BISOPROLOL FUMARATE [Concomitant]
     Active Substance: BISOPROLOL FUMARATE
     Indication: Arrhythmia
     Dosage: 5 MG
  8. ALDACTAZIDE [Concomitant]
     Active Substance: HYDROCHLOROTHIAZIDE\SPIRONOLACTONE
     Indication: Hypertension
     Dosage: 25 MG

REACTIONS (3)
  - Myocardial infarction [Recovered/Resolved]
  - Pneumonia [Unknown]
  - Diabetes mellitus inadequate control [Unknown]

NARRATIVE: CASE EVENT DATE: 20240610
